FAERS Safety Report 5899378-1 (Version None)
Quarter: 2008Q3

REPORT INFORMATION
  Report Type: 
  Country: None (occurrence: None)
  Receive Date: 20080924
  Receipt Date: 20080908
  Transmission Date: 20090109
  Serious: Yes (Death, Life-Threatening, Other)
  Sender: FDA-Public Use
  Company Number: 2008S1000096

PATIENT
  Age: 56 Year
  Sex: Male
  Weight: 103 kg

DRUGS (3)
  1. INOMAX [Suspect]
     Indication: ACUTE RESPIRATORY DISTRESS SYNDROME
     Dosage: 40 PPM; CONT; INH
     Route: 055
     Dates: start: 20080907, end: 20080908
  2. INOMAX [Suspect]
     Indication: HYPOXIA
     Dosage: 40 PPM; CONT; INH
     Route: 055
     Dates: start: 20080907, end: 20080908
  3. INOMAX [Suspect]
     Indication: LUNG INJURY
     Dosage: 40 PPM; CONT; INH
     Route: 055
     Dates: start: 20080907, end: 20080908

REACTIONS (3)
  - CARDIO-RESPIRATORY ARREST [None]
  - DEVICE MALFUNCTION [None]
  - OXYGEN SATURATION DECREASED [None]
